FAERS Safety Report 10455563 (Version 1)
Quarter: 2014Q3

REPORT INFORMATION
  Report Type: Spontaneous
  Country: US (occurrence: None)
  Receive Date: 20140818
  Receipt Date: 20140818
  Transmission Date: 20150326
  Serious: Yes (Hospitalization)
  Sender: FDA-Public Use
  Company Number: 20111005VANCO2350

PATIENT
  Sex: Female

DRUGS (6)
  1. SYNTHROID [Concomitant]
     Active Substance: LEVOTHYROXINE SODIUM
  2. CALCIUM (CALCIUM) [Concomitant]
     Active Substance: CALCIUM
  3. UNSPECIFIED PROBIOTIC [Concomitant]
  4. VANCOCIN [Suspect]
     Active Substance: VANCOMYCIN HYDROCHLORIDE
     Indication: CLOSTRIDIUM DIFFICILE INFECTION
     Route: 048
     Dates: start: 20110424
  5. ZOLOFT [Concomitant]
     Active Substance: SERTRALINE HYDROCHLORIDE
  6. VITAMIN (VITAMINS NOS) [Concomitant]

REACTIONS (4)
  - Malaise [None]
  - Wrong technique in drug usage process [None]
  - Diarrhoea [None]
  - Infection [None]

NARRATIVE: CASE EVENT DATE: 2011
